FAERS Safety Report 5005650-X (Version None)
Quarter: 2006Q2

REPORT INFORMATION
  Report Type: 
  Country: None (occurrence: None)
  Receive Date: 20060515
  Receipt Date: 20060505
  Transmission Date: 20061013
  Serious: No
  Sender: FDA-Public Use
  Company Number: 2006SP001974

PATIENT
  Age: 46 Year
  Sex: Female
  Weight: 88.905 kg

DRUGS (8)
  1. LUNESTA [Suspect]
     Indication: INSOMNIA
     Dosage: 3 MG HS ORAL
     Route: 048
     Dates: start: 20051201, end: 20060223
  2. LUNESTA [Suspect]
     Indication: INSOMNIA
     Dosage: 3 MG HS ORAL
     Route: 048
     Dates: start: 20060301
  3. XANAX [Suspect]
     Dosage: 8 MG HS ORAL ; 4.5 MG HS ORAL ; 8 MG HS ORAL
     Route: 048
     Dates: end: 20060216
  4. XANAX [Suspect]
     Dosage: 8 MG HS ORAL ; 4.5 MG HS ORAL ; 8 MG HS ORAL
     Route: 048
     Dates: start: 20060401, end: 20060503
  5. XANAX [Suspect]
     Dosage: 8 MG HS ORAL ; 4.5 MG HS ORAL ; 8 MG HS ORAL
     Route: 048
     Dates: start: 20060504
  6. HYDROCHLOROTHIAZIDE [Concomitant]
  7. GEODON [Concomitant]
  8. XANAX [Concomitant]

REACTIONS (5)
  - ABNORMAL DREAMS [None]
  - DRUG WITHDRAWAL CONVULSIONS [None]
  - FEAR [None]
  - INSOMNIA [None]
  - TREATMENT NONCOMPLIANCE [None]
